FAERS Safety Report 16474559 (Version 1)
Quarter: 2019Q2

REPORT INFORMATION
  Report Type: Spontaneous
  Country: US (occurrence: US)
  Receive Date: 20190515
  Receipt Date: 20190515
  Transmission Date: 20190711
  Serious: Yes (Death)
  Sender: FDA-Public Use
  Company Number: None

PATIENT
  Age: 71 Year
  Sex: Male

DRUGS (16)
  1. LOSARTAN. [Concomitant]
     Active Substance: LOSARTAN
  2. ASPIRIN. [Concomitant]
     Active Substance: ASPIRIN
  3. SULFASALAZINE. [Concomitant]
     Active Substance: SULFASALAZINE
  4. MULTIVITAMINS [Concomitant]
     Active Substance: VITAMINS
  5. FOLIC ACID. [Concomitant]
     Active Substance: FOLIC ACID
  6. CALCIUM [Concomitant]
     Active Substance: CALCIUM
  7. CRESEMBA [Suspect]
     Active Substance: ISAVUCONAZONIUM SULFATE
     Indication: ACUTE MYELOID LEUKAEMIA
     Route: 048
  8. PRAVASTATIN. [Concomitant]
     Active Substance: PRAVASTATIN
  9. PLAVIX [Concomitant]
     Active Substance: CLOPIDOGREL BISULFATE
  10. MAGNESIUM [Concomitant]
     Active Substance: MAGNESIUM
  11. TRAZODONE [Concomitant]
     Active Substance: TRAZODONE HYDROCHLORIDE
  12. VITAMIN B COMPLEX [Concomitant]
     Active Substance: CYANOCOBALAMIN\DEXPANTHENOL\NIACINAMIDE\PYRIDOXINE HYDROCHLORIDE\RIBOFLAVIN 5^-PHOSPHATE SODIUM\THIAMINE HYDROCHLORIDE\VITAMIN B COMPLEX
  13. VITAMIN E [Concomitant]
     Active Substance: .ALPHA.-TOCOPHEROL
  14. MERCAPTOPURINE. [Concomitant]
     Active Substance: MERCAPTOPURINE
  15. CARVEDILOL. [Concomitant]
     Active Substance: CARVEDILOL
  16. VENCLEXTA [Concomitant]
     Active Substance: VENETOCLAX

REACTIONS (1)
  - Death [None]
